FAERS Safety Report 19028380 (Version 4)
Quarter: 2023Q1

REPORT INFORMATION
  Report Type: Spontaneous
  Country: JP (occurrence: JP)
  Receive Date: 20210319
  Receipt Date: 20230111
  Transmission Date: 20230418
  Serious: Yes (Hospitalization, Other)
  Sender: FDA-Public Use
  Company Number: JP-CELLTRION INC.-2021JP003248

PATIENT

DRUGS (13)
  1. TRASTUZUMAB [Suspect]
     Active Substance: TRASTUZUMAB
     Indication: Breast cancer
     Dosage: 110 MILLIGRAM, QD (EVERY ADMINISTRATION)
     Route: 041
     Dates: start: 20200708, end: 20210216
  2. TRASTUZUMAB [Suspect]
     Active Substance: TRASTUZUMAB
     Dosage: 110 MILLIGRAM, QD
     Route: 042
     Dates: start: 20200708, end: 20201209
  3. HERCEPTIN [Suspect]
     Active Substance: TRASTUZUMAB
     Indication: Breast cancer
     Dosage: 120 MILLIGRAM, QD (EVERY ADMINISTRATION DAY)
     Route: 041
     Dates: start: 20161213, end: 20170509
  4. HERCEPTIN [Suspect]
     Active Substance: TRASTUZUMAB
     Dosage: UNK, UNK, QD
     Route: 042
  5. GEMCITABINE [Concomitant]
     Active Substance: GEMCITABINE
     Indication: Breast cancer
     Dosage: UNK, ONCE-WEEKLY FOR 2 WEEKS
     Dates: start: 20200708
  6. GEMCITABINE [Concomitant]
     Active Substance: GEMCITABINE
     Dosage: UNK
     Dates: start: 20200610, end: 20201209
  7. METHADONE HYDROCHLORIDE [Concomitant]
     Active Substance: METHADONE HYDROCHLORIDE
     Indication: Cancer pain
     Dosage: UNK
     Dates: start: 20200526
  8. OXINORM [Concomitant]
     Indication: Cancer pain
     Dosage: UNK
     Dates: start: 20161206
  9. SILVER SULFADIAZINE [Concomitant]
     Active Substance: SILVER SULFADIAZINE
     Indication: Wound treatment
     Dosage: UNK
     Dates: start: 20190917
  10. LOXOPROFEN SODIUM [Concomitant]
     Active Substance: LOXOPROFEN SODIUM
     Indication: Pain
  11. REBAMIPIDE [Concomitant]
     Active Substance: REBAMIPIDE
     Indication: Pain
  12. FUROSEMIDE [Concomitant]
     Active Substance: FUROSEMIDE
     Indication: Product used for unknown indication
     Dosage: UNK
     Dates: start: 202101
  13. SPIRONOLACTONE [Concomitant]
     Active Substance: SPIRONOLACTONE
     Indication: Product used for unknown indication
     Dosage: UNK
     Dates: start: 202101

REACTIONS (2)
  - Cardiac failure [Recovering/Resolving]
  - Underdose [Unknown]

NARRATIVE: CASE EVENT DATE: 20210107
